FAERS Safety Report 4577506-8 (Version None)
Quarter: 2005Q1

REPORT INFORMATION
  Report Type: 
  Country: None (occurrence: None)
  Receive Date: 20050208
  Receipt Date: 20050126
  Transmission Date: 20050727
  Serious: Yes (Death)
  Sender: FDA-Public Use
  Company Number: 2005021757

PATIENT
  Age: 55 Year
  Sex: Female
  Weight: 49 kg

DRUGS (6)
  1. SOLU-MEDROL [Suspect]
     Indication: ILL-DEFINED DISORDER
     Dosage: 360 MG 9120 MG, THREE TIMES A DAY), INTRAVENOUS
     Route: 042
     Dates: start: 20041213, end: 20041217
  2. MEPRONIZINE           (ACEPROMETAZINE, MEPROBAMATE) [Suspect]
     Indication: ILL-DEFINED DISORDER
     Dosage: 1 DOSE  FORM (DAILY), ORAL
     Route: 048
     Dates: start: 20041213, end: 20041219
  3. FUROSEMIDE [Suspect]
     Indication: ILL-DEFINED DISORDER
     Dosage: 60 MG (DAILY), INTRAVENOUS
     Route: 042
     Dates: start: 20041214, end: 20041215
  4. PAMIDRONATE DISODIUM [Suspect]
     Indication: ILL-DEFINED DISORDER
     Dosage: 90 MG (ONCE A MONTH), INTRAVENOUS
     Route: 042
     Dates: start: 20041216, end: 20041216
  5. HYDROMORPHONE HYDROCHLORIDE [Suspect]
     Indication: ILL-DEFINED DISORDER
     Dosage: 8 MG (DAILY), ORAL
     Route: 048
     Dates: start: 20041216, end: 20041223
  6. MEPROBAMATE [Suspect]
     Indication: ILL-DEFINED DISORDER
     Dosage: 250 MG (250 MG, DAILY), ORAL
     Route: 048
     Dates: start: 20041214, end: 20041219

REACTIONS (5)
  - DRUG TOXICITY [None]
  - NEPHRITIS INTERSTITIAL [None]
  - PARANEOPLASTIC SYNDROME [None]
  - RENAL FAILURE ACUTE [None]
  - TUMOUR LYSIS SYNDROME [None]
